FAERS Safety Report 15407728 (Version 1)
Quarter: 2018Q3

REPORT INFORMATION
  Report Type: Spontaneous
  Country: US (occurrence: US)
  Receive Date: 20180920
  Receipt Date: 20180920
  Transmission Date: 20181010
  Serious: No
  Sender: FDA-Public Use
  Company Number: US-BAUSCH-BL-2017-030128

PATIENT
  Age: 47 Year
  Sex: Female
  Weight: 53.57 kg

DRUGS (2)
  1. FLUOROURACIL 5% CREAM [Suspect]
     Active Substance: FLUOROURACIL
     Indication: CARCINOMA IN SITU
     Dosage: APPLIED DAILY TO THE ENTIRE FACE FOR THREE WEEKS
     Route: 061
     Dates: start: 20170902, end: 20170922
  2. JUNEL [Concomitant]
     Active Substance: ETHINYL ESTRADIOL\NORETHINDRONE ACETATE
     Indication: CONTRACEPTION
     Dosage: DOSE: 1.5 MG/30 ML
     Route: 048
     Dates: start: 201705

REACTIONS (1)
  - Scar [Not Recovered/Not Resolved]

NARRATIVE: CASE EVENT DATE: 20170929
